FAERS Safety Report 4796532-7 (Version None)
Quarter: 2005Q4

REPORT INFORMATION
  Report Type: 
  Country: None (occurrence: None)
  Receive Date: 20051011
  Receipt Date: 20040830
  Transmission Date: 20060501
  Serious: Yes (Disabling)
  Sender: FDA-Public Use
  Company Number: 2004-BP-05403BP

PATIENT
  Age: 60 Year
  Sex: Male
  Weight: 90.7 kg

DRUGS (8)
  1. CATAPRES [Suspect]
     Indication: HYPERTENSION
     Dosage: 0.3 MG (7.5 MG,1 PATCH WEEKLY), TO; 0.2 MG (5MG,1 IN 1 WK), TO; 0.1 MG (2.5 MG), TO
     Route: 061
     Dates: start: 20040104, end: 20040401
  2. CATAPRES [Suspect]
     Indication: HYPERTENSION
     Dosage: 0.3 MG (7.5 MG,1 PATCH WEEKLY), TO; 0.2 MG (5MG,1 IN 1 WK), TO; 0.1 MG (2.5 MG), TO
     Route: 061
     Dates: start: 20040401, end: 20040501
  3. CATAPRES [Suspect]
     Indication: HYPERTENSION
     Dosage: 0.3 MG (7.5 MG,1 PATCH WEEKLY), TO; 0.2 MG (5MG,1 IN 1 WK), TO; 0.1 MG (2.5 MG), TO
     Route: 061
     Dates: start: 20040501, end: 20040823
  4. HYTRIN [Concomitant]
  5. BENICAR [Concomitant]
  6. ATENOLOL [Concomitant]
  7. LASIX [Concomitant]
  8. ASPIRIN [Concomitant]

REACTIONS (5)
  - APPLICATION SITE ERYTHEMA [None]
  - APPLICATION SITE IRRITATION [None]
  - APPLICATION SITE PAPULES [None]
  - APPLICATION SITE PRURITUS [None]
  - ECZEMA [None]
